FAERS Safety Report 20664828 (Version 1)
Quarter: 2022Q2

REPORT INFORMATION
  Report Type: Spontaneous
  Country: US (occurrence: None)
  Receive Date: 20220401
  Receipt Date: 20220401
  Transmission Date: 20220721
  Serious: Yes (Hospitalization)
  Sender: FDA-Public Use
  Company Number: None

PATIENT
  Age: 43 Year
  Sex: Female
  Weight: 63.96 kg

DRUGS (1)
  1. GAMMAPLEX [Suspect]
     Active Substance: HUMAN IMMUNOGLOBULIN G
     Indication: Myasthenia gravis
     Route: 042
     Dates: start: 20220324, end: 20220324

REACTIONS (4)
  - Nausea [None]
  - Vomiting [None]
  - Blood glucose increased [None]
  - Unevaluable event [None]

NARRATIVE: CASE EVENT DATE: 20220325
